FAERS Safety Report 11313604 (Version 2)
Quarter: 2015Q3

REPORT INFORMATION
  Report Type: Spontaneous
  Country: JP (occurrence: JP)
  Receive Date: 20150727
  Receipt Date: 20150908
  Transmission Date: 20151125
  Serious: No
  Sender: FDA-Public Use
  Company Number: JP-ACTELION-A-CH2015-121294

PATIENT
  Age: 69 Year
  Sex: Female

DRUGS (5)
  1. ASPIRIN. [Suspect]
     Active Substance: ASPIRIN
     Indication: PRODUCT USED FOR UNKNOWN INDICATION
     Route: 048
  2. OPSUMIT [Suspect]
     Active Substance: MACITENTAN
     Indication: PULMONARY ARTERIAL HYPERTENSION
     Dosage: 10 MG, QD
     Route: 048
     Dates: start: 20150710, end: 20150714
  3. TADALAFIL [Concomitant]
     Active Substance: TADALAFIL
  4. OPSUMIT [Suspect]
     Active Substance: MACITENTAN
     Dosage: UNK
     Route: 048
  5. OXYGEN. [Concomitant]
     Active Substance: OXYGEN

REACTIONS (5)
  - Hepatic function abnormal [Unknown]
  - Alanine aminotransferase increased [Unknown]
  - Epistaxis [Unknown]
  - Aspartate aminotransferase increased [Unknown]
  - Anaemia [Unknown]

NARRATIVE: CASE EVENT DATE: 20150711
